FAERS Safety Report 8890245 (Version 4)
Quarter: 2012Q4

REPORT INFORMATION
  Report Type: 
  Country: JP (occurrence: JP)
  Receive Date: 20121107
  Receipt Date: 20121206
  Transmission Date: 20130627
  Serious: Yes (Disabling)
  Sender: FDA-Public Use
  Company Number: JP-PFIZER INC-2012272740

PATIENT
  Age: 52 Year
  Sex: Male

DRUGS (11)
  1. FOSPHENYTOIN SODIUM [Suspect]
     Indication: EPILEPSY
     Dosage: 375 mg, single
     Route: 041
     Dates: start: 20121023, end: 20121023
  2. NORMAL SALINE [Concomitant]
     Dosage: 100 ml, single
     Route: 041
     Dates: start: 20121023, end: 20121023
  3. PRUSENNID [Concomitant]
     Indication: CONSTIPATION PROPHYLAXIS
     Dosage: UNK
     Route: 048
     Dates: start: 20081208
  4. FLUNITRAZEPAM [Concomitant]
     Indication: SLEEP LOSS
     Dosage: UNK
     Route: 048
     Dates: start: 20120424
  5. DEPAKENE R [Concomitant]
     Indication: CEREBRAL INFARCTION
     Dosage: UNK
     Route: 048
     Dates: start: 20120529
  6. DEPAKENE R [Concomitant]
     Dosage: 800mg/day
  7. GRAMALIL [Concomitant]
     Indication: CEREBRAL INFARCTION
     Dosage: 25 mg
     Route: 048
     Dates: start: 20120515
  8. HIRNAMIN [Concomitant]
     Indication: SLEEP LOSS
     Dosage: UNK
     Route: 048
     Dates: start: 20120511
  9. PLAVIX [Concomitant]
     Indication: CEREBRAL INFARCTION
     Dosage: UNK
     Route: 048
     Dates: start: 20120911
  10. NISERGOLINE [Concomitant]
     Indication: CEREBRAL INFARCTION
     Dosage: UNK
     Route: 048
     Dates: start: 20081202
  11. BROTIZOLAM [Concomitant]
     Indication: SLEEP DISORDER
     Dosage: UNK
     Dates: start: 20120904

REACTIONS (4)
  - Drug eruption [Recovered/Resolved]
  - Erythema [Recovered/Resolved]
  - Pruritus [Recovered/Resolved]
  - Rash [Recovered/Resolved]
